FAERS Safety Report 4370162-3 (Version None)
Quarter: 2004Q2

REPORT INFORMATION
  Report Type: 
  Country: None (occurrence: None)
  Receive Date: 20040603
  Receipt Date: 20040423
  Transmission Date: 20050107
  Serious: No
  Sender: FDA-Public Use
  Company Number: US-BRISTOL-MYERS SQUIBB COMPANY-12573390

PATIENT
  Age: 37 Year
  Sex: Female

DRUGS (6)
  1. ABILIFY [Suspect]
     Indication: BIPOLAR DISORDER
     Dosage: INITIAL DOSE: 7.5 MG/DAY; RESTARTED 1 YEAR LATER AT 2.5 MG/DAY INC TO 5 MG/DAY
     Route: 048
  2. SERTRALINE [Concomitant]
  3. OXCARBAZEPINE [Concomitant]
  4. MODAFINIL [Concomitant]
  5. OMEGA-3 [Concomitant]
  6. BUPROPION HCL [Concomitant]

REACTIONS (1)
  - BONE PAIN [None]
